FAERS Safety Report 8321790-1 (Version None)
Quarter: 2012Q2

REPORT INFORMATION
  Report Type: 
  Country: None (occurrence: None)
  Receive Date: 20120426
  Receipt Date: 20120411
  Transmission Date: 20120825
  Serious: Yes (Other)
  Sender: FDA-Public Use
  Company Number: 2012AP000999

PATIENT
  Age: 63 Year
  Sex: Male

DRUGS (1)
  1. SOTALOL HCL [Suspect]
     Indication: PRODUCT USED FOR UNKNOWN INDICATION
     Dosage: 1 DF; TAB; PO; TID
     Route: 048
     Dates: start: 20120201, end: 20120401

REACTIONS (11)
  - VISUAL IMPAIRMENT [None]
  - HEADACHE [None]
  - OROPHARYNGEAL PAIN [None]
  - FATIGUE [None]
  - MALAISE [None]
  - DRY MOUTH [None]
  - ABDOMINAL PAIN UPPER [None]
  - FEELING COLD [None]
  - ASTHENIA [None]
  - ANGINA PECTORIS [None]
  - OESOPHAGEAL PAIN [None]
